FAERS Safety Report 21378145 (Version 1)
Quarter: 2022Q3

REPORT INFORMATION
  Report Type: Spontaneous
  Country: US (occurrence: US)
  Receive Date: 20220926
  Receipt Date: 20220926
  Transmission Date: 20221027
  Serious: No
  Sender: FDA-Public Use
  Company Number: US-AMGEN-USASP2022163033

PATIENT

DRUGS (2)
  1. ERENUMAB [Suspect]
     Active Substance: ERENUMAB
     Indication: Migraine
     Dosage: 140 MILLIGRAM
     Route: 065
  2. GALCANEZUMAB [Suspect]
     Active Substance: GALCANEZUMAB
     Indication: Migraine
     Dosage: 240 MILLIGRAM
     Route: 065

REACTIONS (5)
  - COVID-19 [Unknown]
  - Nausea [Unknown]
  - Constipation [Unknown]
  - Abdominal distension [Unknown]
  - Injection site reaction [Unknown]
